FAERS Safety Report 11898033 (Version 1)
Quarter: 2016Q1

REPORT INFORMATION
  Report Type: Spontaneous
  Country: US (occurrence: None)
  Receive Date: 20160107
  Receipt Date: 20160107
  Transmission Date: 20160526
  Serious: No
  Sender: FDA-Public Use
  Company Number: None

PATIENT
  Age: 37 Year
  Sex: Male
  Weight: 68.76 kg

DRUGS (1)
  1. HALOPERIDOL. [Suspect]
     Active Substance: HALOPERIDOL
     Indication: TACHYPHRENIA
     Route: 048
     Dates: start: 20151218, end: 20151219

REACTIONS (4)
  - Jaw disorder [None]
  - Bruxism [None]
  - Dystonia [None]
  - Muscle tightness [None]

NARRATIVE: CASE EVENT DATE: 20151218
